FAERS Safety Report 4703758-7 (Version None)
Quarter: 2005Q2

REPORT INFORMATION
  Report Type: 
  Country: None (occurrence: None)
  Receive Date: 20050628
  Receipt Date: 20050621
  Transmission Date: 20051028
  Serious: Yes (Hospitalization)
  Sender: FDA-Public Use
  Company Number: 2005-129736-NL

PATIENT
  Age: 36 Year
  Sex: Female

DRUGS (7)
  1. MIRTAZAPINE [Suspect]
     Dosage: 30 MG DAILY
  2. TRAMADOL [Suspect]
     Dosage: 50 MG DAILY
  3. TRAMADOL [Suspect]
     Dosage: 750 MG DAILY
  4. GABAPENTIN [Concomitant]
  5. ZOLPIDEM [Concomitant]
  6. LEVOTHYROXINE [Concomitant]
  7. CONJUGATED ESTROGEN [Concomitant]

REACTIONS (8)
  - CONFUSIONAL STATE [None]
  - CONVULSION [None]
  - DYSKINESIA [None]
  - DYSPNOEA [None]
  - LETHARGY [None]
  - LOSS OF CONSCIOUSNESS [None]
  - SALIVARY HYPERSECRETION [None]
  - SEROTONIN SYNDROME [None]
